FAERS Safety Report 6906824-0 (Version None)
Quarter: 2010Q3

REPORT INFORMATION
  Report Type: 
  Country: None (occurrence: None)
  Receive Date: 20100804
  Receipt Date: 20100726
  Transmission Date: 20110219
  Serious: Yes (Other)
  Sender: FDA-Public Use
  Company Number: US-ELI_LILLY_AND_COMPANY-US201007006418

PATIENT
  Age: 60 Year
  Sex: Male

DRUGS (5)
  1. HUMALOG [Suspect]
     Indication: DIABETES MELLITUS
     Dosage: 50 U, 3/D
  2. HUMALOG [Suspect]
  3. LISINOPRIL [Concomitant]
  4. ATENOLOL [Concomitant]
  5. SUN BATH PROTECTIVE TANNING LOTION [Concomitant]
     Indication: PHOTOSENSITIVITY REACTION

REACTIONS (4)
  - CORONARY ARTERIAL STENT INSERTION [None]
  - DEMENTIA [None]
  - INJURY [None]
  - SURGERY [None]
